FAERS Safety Report 8888772 (Version 3)
Quarter: 2012Q4

REPORT INFORMATION
  Report Type: 
  Country: US (occurrence: US)
  Receive Date: 20121106
  Receipt Date: 20121127
  Transmission Date: 20130627
  Serious: Yes (Hospitalization)
  Sender: FDA-Public Use
  Company Number: US-GILEAD-2012-0061820

PATIENT
  Sex: Female

DRUGS (2)
  1. LETAIRIS [Suspect]
     Indication: PULMONARY ARTERIAL HYPERTENSION
     Dosage: 10 mg, QD
     Route: 048
     Dates: start: 20120427
  2. REVATIO [Concomitant]

REACTIONS (6)
  - Schizoaffective disorder [Unknown]
  - Suicidal ideation [Unknown]
  - Oedema [Unknown]
  - Unevaluable event [Unknown]
  - Fluid retention [Unknown]
  - Fatigue [Unknown]
